FAERS Safety Report 19201353 (Version 3)
Quarter: 2022Q1

REPORT INFORMATION
  Report Type: Spontaneous
  Country: DE (occurrence: DE)
  Receive Date: 20210430
  Receipt Date: 20220118
  Transmission Date: 20220423
  Serious: Yes (Life-Threatening, Hospitalization, Other)
  Sender: FDA-Public Use
  Company Number: DE-AMERICAN REGENT INC-20170553

PATIENT
  Age: 76 Year
  Sex: Female
  Weight: 50 kg

DRUGS (2)
  1. FERINJECT [Suspect]
     Active Substance: FERRIC CARBOXYMALTOSE
     Indication: Iron deficiency anaemia
     Dosage: UNK, WEEKLY
     Dates: start: 201602, end: 201611
  2. FERINJECT [Suspect]
     Active Substance: FERRIC CARBOXYMALTOSE
     Indication: Anaemia

REACTIONS (6)
  - Intestinal haemorrhage [Unknown]
  - Haematemesis [Recovering/Resolving]
  - Hypophosphataemic osteomalacia [Recovering/Resolving]
  - Body temperature increased [Recovering/Resolving]
  - Bedridden [Unknown]
  - Wheelchair user [Unknown]

NARRATIVE: CASE EVENT DATE: 20161101
